FAERS Safety Report 23999903 (Version 4)
Quarter: 2024Q4

REPORT INFORMATION
  Report Type: Report from Study
  Country: DE (occurrence: DE)
  Receive Date: 20240621
  Receipt Date: 20241226
  Transmission Date: 20250115
  Serious: Yes (Hospitalization)
  Sender: PFIZER
  Company Number: DE-002147023-NVSC2023DE262193

PATIENT
  Sex: Male

DRUGS (12)
  1. METHOTREXATE SODIUM [Suspect]
     Active Substance: METHOTREXATE SODIUM
     Indication: Psoriatic arthropathy
     Dosage: 20 MG
     Route: 058
     Dates: start: 20201125
  2. METHOTREXATE SODIUM [Suspect]
     Active Substance: METHOTREXATE SODIUM
     Dosage: 20 MG, QW
     Route: 058
     Dates: start: 20201125
  3. COSENTYX [Suspect]
     Active Substance: SECUKINUMAB
     Indication: Psoriatic arthropathy
     Dosage: 300 MG
     Route: 065
     Dates: start: 20220909
  4. COSENTYX [Suspect]
     Active Substance: SECUKINUMAB
     Dosage: 300 MG, QMO
     Dates: start: 20220909
  5. ACEMETACIN [Suspect]
     Active Substance: ACEMETACIN
     Indication: Psoriatic arthropathy
     Dosage: 180 MG
     Route: 065
     Dates: start: 20201215
  6. ACEMETACIN [Suspect]
     Active Substance: ACEMETACIN
     Dosage: 180 MG
     Route: 065
     Dates: start: 20201215, end: 20220903
  7. ACEMETACIN [Suspect]
     Active Substance: ACEMETACIN
     Dosage: 180 MG, 7 DAYS PER WEEK
     Route: 065
     Dates: start: 20220919
  8. ACEMETACIN [Suspect]
     Active Substance: ACEMETACIN
     Dosage: 180 MG
     Route: 065
     Dates: start: 20220919
  9. TALTZ [Suspect]
     Active Substance: IXEKIZUMAB
     Indication: Psoriatic arthropathy
     Dosage: 80 MG
     Route: 065
     Dates: start: 20201202, end: 20220829
  10. TALTZ [Suspect]
     Active Substance: IXEKIZUMAB
     Dosage: 160 MG
     Route: 065
     Dates: start: 20201202
  11. TALTZ [Suspect]
     Active Substance: IXEKIZUMAB
     Dosage: 80 MG
     Route: 065
     Dates: start: 20201202
  12. NAPROXEN [Suspect]
     Active Substance: NAPROXEN
     Indication: Psoriatic arthropathy
     Dosage: 500 MG
     Route: 065
     Dates: start: 20220904, end: 20220918

REACTIONS (12)
  - Joint swelling [Unknown]
  - Arthralgia [Unknown]
  - Meniscus injury [Not Recovered/Not Resolved]
  - Cholelithiasis [Unknown]
  - Rotator cuff syndrome [Unknown]
  - Synovial cyst [Unknown]
  - Nasopharyngitis [Unknown]
  - Hepatic steatosis [Unknown]
  - Pancreatic steatosis [Unknown]
  - Reactive gastropathy [Unknown]
  - Gastrooesophageal reflux disease [Unknown]
  - Duodenitis [Unknown]

NARRATIVE: CASE EVENT DATE: 20230116
